FAERS Safety Report 14554265 (Version 13)
Quarter: 2021Q1

REPORT INFORMATION
  Report Type: Spontaneous
  Country: US (occurrence: US)
  Receive Date: 20180220
  Receipt Date: 20210312
  Transmission Date: 20210419
  Serious: Yes (Hospitalization, Other)
  Sender: FDA-Public Use
  Company Number: US-PFIZER INC-2018067415

PATIENT
  Age: 54 Year
  Sex: Male

DRUGS (2)
  1. LYRICA [Suspect]
     Active Substance: PREGABALIN
     Indication: NEUROPATHY PERIPHERAL
     Dosage: 200 MG, 1X/DAY [QHS (EVERY NIGHT AT BEDTIME)]
     Route: 048
     Dates: start: 2005
  2. LYRICA [Suspect]
     Active Substance: PREGABALIN
     Indication: INTERVERTEBRAL DISC DEGENERATION
     Dosage: 200 MG, 3X/DAY AS NEEDED
     Route: 048

REACTIONS (18)
  - Respiratory arrest [Unknown]
  - Cerebrovascular accident [Recovered/Resolved]
  - Myocardial infarction [Unknown]
  - Liver disorder [Unknown]
  - Limb injury [Unknown]
  - Blood glucose increased [Unknown]
  - Illness [Unknown]
  - Cardiac dysfunction [Unknown]
  - Drug dependence [Unknown]
  - Fall [Unknown]
  - Feeding disorder [Unknown]
  - Weight decreased [Unknown]
  - Haemorrhage [Unknown]
  - Loss of consciousness [Unknown]
  - Hypoaesthesia [Unknown]
  - Coma [Unknown]
  - Gait inability [Unknown]
  - Decubitus ulcer [Unknown]

NARRATIVE: CASE EVENT DATE: 2013
